FAERS Safety Report 5468767-1 (Version None)
Quarter: 2007Q3

REPORT INFORMATION
  Report Type: 
  Country: None (occurrence: None)
  Receive Date: 20070926
  Receipt Date: 20070917
  Transmission Date: 20080115
  Serious: Yes (Disabling, Other)
  Sender: FDA-Public Use
  Company Number: AU-PFIZER INC-2007071079

PATIENT
  Sex: Male
  Weight: 92 kg

DRUGS (8)
  1. LIPITOR [Suspect]
     Indication: HYPERCHOLESTEROLAEMIA
     Route: 048
     Dates: start: 20060101, end: 20070816
  2. LEXAPRO [Suspect]
     Indication: DEPRESSION
     Route: 048
     Dates: start: 20070524, end: 20070816
  3. ANTIHYPERTENSIVES [Concomitant]
  4. ALLOPURINOL [Concomitant]
     Indication: LIVER FUNCTION TEST ABNORMAL
     Dosage: DAILY DOSE:100MG-FREQ:DAILY
     Route: 048
     Dates: start: 20050501, end: 20070823
  5. ALLOPURINOL [Concomitant]
     Indication: MUSCLE DISORDER
  6. CARTIA XT [Concomitant]
     Indication: MYOCARDIAL ISCHAEMIA
     Dosage: DAILY DOSE:100MG-FREQ:DAILY
     Route: 048
  7. METOPROLOL [Concomitant]
     Indication: MYOCARDIAL ISCHAEMIA
     Dosage: DAILY DOSE:25MG-FREQ:DAILY
     Route: 048
  8. RAMIPRIL [Concomitant]
     Indication: MYOCARDIAL ISCHAEMIA
     Dosage: DAILY DOSE:2.5MG-FREQ:DAILY
     Route: 048

REACTIONS (7)
  - BLOOD CREATINE PHOSPHOKINASE INCREASED [None]
  - CHROMATURIA [None]
  - DEPRESSION [None]
  - LIVER FUNCTION TEST ABNORMAL [None]
  - MUSCULAR WEAKNESS [None]
  - MYALGIA [None]
  - RHABDOMYOLYSIS [None]
